FAERS Safety Report 7680474-3 (Version None)
Quarter: 2011Q3

REPORT INFORMATION
  Report Type: 
  Country: None (occurrence: None)
  Receive Date: 20110812
  Receipt Date: 20110801
  Transmission Date: 20111222
  Serious: Yes (Hospitalization)
  Sender: FDA-Public Use
  Company Number: US-JNJFOC-20080306185

PATIENT
  Sex: Female
  Weight: 40.5 kg

DRUGS (5)
  1. REMICADE [Suspect]
     Indication: CROHN'S DISEASE
     Route: 042
     Dates: start: 20080213
  2. AMITRIPTYLINE HCL [Concomitant]
  3. REMICADE [Suspect]
     Route: 042
     Dates: start: 20040621
  4. PREDNISONE [Concomitant]
  5. REMICADE [Suspect]
     Dosage: TOTAL 25 DOSES
     Route: 042
     Dates: start: 20080816

REACTIONS (2)
  - DEHYDRATION [None]
  - CROHN'S DISEASE [None]
